FAERS Safety Report 6075017-4 (Version None)
Quarter: 2009Q1

REPORT INFORMATION
  Report Type: 
  Country: None (occurrence: None)
  Receive Date: 20090212
  Receipt Date: 20090203
  Transmission Date: 20090719
  Serious: Yes (Other)
  Sender: FDA-Public Use
  Company Number: DE-ALLERGAN-0901544US

PATIENT
  Sex: Male

DRUGS (8)
  1. BOTOX [Suspect]
     Indication: DRUG USE FOR UNKNOWN INDICATION
     Route: 030
  2. ALLOPURINOL [Concomitant]
     Indication: DRUG USE FOR UNKNOWN INDICATION
  3. CAPTOHEXAL [Concomitant]
     Indication: DRUG USE FOR UNKNOWN INDICATION
  4. CONCOR [Concomitant]
     Indication: DRUG USE FOR UNKNOWN INDICATION
  5. ACETAMINOPHEN [Concomitant]
     Indication: DRUG USE FOR UNKNOWN INDICATION
  6. NOVALGIN [Concomitant]
     Indication: DRUG USE FOR UNKNOWN INDICATION
  7. LIORESAL [Concomitant]
     Indication: DRUG USE FOR UNKNOWN INDICATION
  8. REMERGIL [Concomitant]
     Indication: DRUG USE FOR UNKNOWN INDICATION

REACTIONS (4)
  - ASPIRATION [None]
  - DYSPHAGIA [None]
  - DYSPNOEA [None]
  - RESPIRATORY FAILURE [None]
